FAERS Safety Report 7933215-6 (Version None)
Quarter: 2011Q4

REPORT INFORMATION
  Report Type: 
  Country: None (occurrence: None)
  Receive Date: 20111122
  Receipt Date: 20111117
  Transmission Date: 20120403
  Serious: Yes (Hospitalization)
  Sender: FDA-Public Use
  Company Number: US-ACTELION-A-NJ2011-51802

PATIENT

DRUGS (5)
  1. REMODULIN [Concomitant]
  2. OXYGEN [Concomitant]
  3. TRACLEER [Suspect]
     Indication: PULMONARY ARTERIAL HYPERTENSION
     Dosage: UNK
     Route: 048
     Dates: start: 20110101
  4. TRACLEER [Suspect]
     Dosage: 125 MG, UNK
     Route: 048
     Dates: start: 20091221, end: 20110101
  5. COUMADIN [Concomitant]

REACTIONS (2)
  - DEVICE RELATED SEPSIS [None]
  - MEDICAL DEVICE COMPLICATION [None]
